FAERS Safety Report 11903469 (Version 2)
Quarter: 2016Q1

REPORT INFORMATION
  Report Type: Spontaneous
  Country: US (occurrence: US)
  Receive Date: 20160110
  Receipt Date: 20160111
  Transmission Date: 20160526
  Serious: Yes (Life-Threatening, Other)
  Sender: FDA-Public Use
  Company Number: PHHY2015US170576

PATIENT
  Age: 69 Year
  Sex: Male

DRUGS (1)
  1. METFORMIN [Suspect]
     Active Substance: METFORMIN HYDROCHLORIDE
     Indication: DIABETES MELLITUS
     Dosage: UNK
     Route: 065

REACTIONS (9)
  - Diarrhoea [Unknown]
  - Lactic acidosis [Recovering/Resolving]
  - Mood altered [Unknown]
  - Blood glucose decreased [Unknown]
  - Acute kidney injury [Recovering/Resolving]
  - Shock [Unknown]
  - Abdominal pain [Unknown]
  - Blood pressure decreased [Unknown]
  - Body temperature decreased [Unknown]
